FAERS Safety Report 17902474 (Version 2)
Quarter: 2020Q3

REPORT INFORMATION
  Report Type: Spontaneous
  Country: ES (occurrence: ES)
  Receive Date: 20200616
  Receipt Date: 20200814
  Transmission Date: 20201103
  Serious: Yes (Death, Life-Threatening, Hospitalization, Other)
  Sender: FDA-Public Use
  Company Number: ES-PFIZER INC-2020232464

PATIENT
  Age: 62 Year
  Sex: Male
  Weight: 77.41 kg

DRUGS (4)
  1. CABAZITAXEL [Suspect]
     Active Substance: CABAZITAXEL
     Indication: PROSTATE CANCER
     Dosage: 20 MG/M2, EVERY 3 WEEKS (Q3W)
     Route: 042
     Dates: start: 20200505
  2. AVELUMAB [Suspect]
     Active Substance: AVELUMAB
     Dosage: 850 MG, CYCLIC (EVERY OTHER WEEK, QOW)
     Route: 042
     Dates: start: 20191107, end: 20200422
  3. AVELUMAB [Suspect]
     Active Substance: AVELUMAB
     Indication: PROSTATE CANCER
     Dosage: 850 MG, Q3W
     Route: 042
     Dates: start: 20190925, end: 20191017
  4. CARBOPLATIN. [Suspect]
     Active Substance: CARBOPLATIN
     Indication: PROSTATE CANCER
     Dosage: UNK, EVERY 3 WEEKS (Q3W 4/5 UNITS)
     Route: 042
     Dates: start: 20190718, end: 20191017

REACTIONS (9)
  - Ecchymosis [Unknown]
  - Toxicity to various agents [Fatal]
  - Pain in extremity [Unknown]
  - Off label use [Unknown]
  - Neoplasm progression [Unknown]
  - Oedema peripheral [Unknown]
  - Product use in unapproved indication [Unknown]
  - Septic shock [Fatal]
  - Necrotising fasciitis [Unknown]

NARRATIVE: CASE EVENT DATE: 20190718
